FAERS Safety Report 20107696 (Version 1)
Quarter: 2021Q4

REPORT INFORMATION
  Report Type: Spontaneous
  Country: US (occurrence: US)
  Receive Date: 20211124
  Receipt Date: 20211124
  Transmission Date: 20220304
  Serious: No
  Sender: FDA-Public Use
  Company Number: US-PERRIGO-20US015956

PATIENT
  Age: 77 Year
  Sex: Male
  Weight: 116.1 kg

DRUGS (3)
  1. POLYETHYLENE GLYCOL 3350 [Suspect]
     Active Substance: POLYETHYLENE GLYCOL 3350
     Indication: Faeces hard
     Dosage: 17 G, QD
     Route: 048
     Dates: start: 20200922, end: 20201103
  2. LASIX                              /00032601/ [Concomitant]
     Indication: Fluid retention
     Dosage: 40 MG, BID
     Route: 048
  3. FISH OIL                           /00492901/ [Concomitant]
     Indication: Cardiac disorder
     Dosage: UNKNOWN, UNKNOWN
     Route: 048

REACTIONS (2)
  - Faeces soft [Recovered/Resolved]
  - Incorrect product administration duration [Recovered/Resolved]

NARRATIVE: CASE EVENT DATE: 20200922
